FAERS Safety Report 6901902-4 (Version None)
Quarter: 2010Q3

REPORT INFORMATION
  Report Type: 
  Country: None (occurrence: None)
  Receive Date: 20100803
  Receipt Date: 20080327
  Transmission Date: 20110219
  Serious: No
  Sender: FDA-Public Use
  Company Number: US-PFIZER INC-2008027384

PATIENT
  Sex: Male

DRUGS (2)
  1. LYRICA [Suspect]
  2. CYMBALTA [Concomitant]

REACTIONS (1)
  - EJACULATION DELAYED [None]
